APPROVED DRUG PRODUCT: CLEMASTINE FUMARATE
Active Ingredient: CLEMASTINE FUMARATE
Strength: EQ 0.5MG BASE/5ML
Dosage Form/Route: SYRUP;ORAL
Application: A074075 | Product #001
Applicant: ACTAVIS MID ATLANTIC LLC
Approved: Oct 31, 1993 | RLD: No | RS: No | Type: DISCN